FAERS Safety Report 9124165 (Version 2)
Quarter: 2013Q1

REPORT INFORMATION
  Report Type: Spontaneous
  Country: FR (occurrence: FR)
  Receive Date: 20130227
  Receipt Date: 20130313
  Transmission Date: 20140127
  Serious: Yes (Other)
  Sender: FDA-Public Use
  Company Number: FR-ASTRAZENECA-2013SE12307

PATIENT
  Age: 57 Year
  Sex: Male
  Weight: 130 kg

DRUGS (3)
  1. CRESTOR [Suspect]
     Indication: CORONARY ARTERY DISEASE
     Route: 048
     Dates: start: 200306, end: 201209
  2. KARDEGIC [Suspect]
     Indication: CORONARY ARTERY DISEASE
     Route: 048
     Dates: start: 200306, end: 201209
  3. BETABLOCKERS [Concomitant]
     Dates: start: 200306, end: 201209

REACTIONS (9)
  - Muscle rupture [Unknown]
  - Libido decreased [Not Recovered/Not Resolved]
  - Atrial fibrillation [Recovered/Resolved]
  - Tendonitis [Not Recovered/Not Resolved]
  - Cardiac failure [Unknown]
  - Erectile dysfunction [Unknown]
  - Diabetes mellitus [Not Recovered/Not Resolved]
  - Myalgia [Recovered/Resolved]
  - Drug ineffective [Unknown]
